FAERS Safety Report 9000302 (Version 6)
Quarter: 2013Q1

REPORT INFORMATION
  Report Type: Report from Study
  Country: US (occurrence: US)
  Receive Date: 20130107
  Receipt Date: 20130326
  Transmission Date: 20140127
  Serious: Yes (Hospitalization, Other)
  Sender: FDA-Public Use
  Company Number: US-CELGENEUS-163-21880-13010045

PATIENT
  Age: 63 Year
  Sex: Male
  Weight: 102.1 kg

DRUGS (24)
  1. REVLIMID [Suspect]
     Indication: PLASMA CELL MYELOMA
     Dosage: 15 MILLIGRAM
     Route: 048
     Dates: start: 20100602, end: 20101011
  2. REVLIMID [Suspect]
     Dosage: 15 MILLIGRAM
     Route: 048
     Dates: end: 20120108
  3. REVLIMID [Suspect]
     Dosage: 15 MILLIGRAM
     Route: 048
     Dates: end: 20121207
  4. REVLIMID [Suspect]
     Dosage: 15 MILLIGRAM
     Route: 048
     Dates: start: 20121214, end: 20130109
  5. REVLIMID [Suspect]
     Indication: PLASMA CELL MYELOMA
     Route: 048
     Dates: start: 20090930
  6. KEFLEX [Concomitant]
     Indication: PROPHYLAXIS
     Dosage: 2000 MILLIGRAM
     Route: 048
  7. NEXIUM [Concomitant]
     Indication: GASTROOESOPHAGEAL REFLUX DISEASE
     Dosage: 40 MILLIGRAM
     Route: 048
     Dates: start: 200812
  8. SYNTHROID [Concomitant]
     Indication: HYPOTHYROIDISM
     Dosage: 50 MICROGRAM
     Route: 048
     Dates: start: 201103
  9. GLUCOPHAGE XR [Concomitant]
     Indication: HYPERGLYCAEMIA
     Dosage: 750 MILLIGRAM
     Route: 048
     Dates: start: 201103
  10. B COMPLEX [Concomitant]
     Indication: SUPPLEMENTATION THERAPY
     Route: 048
  11. ALPHAGAN [Concomitant]
     Indication: GLAUCOMA
     Dosage: 2 DROPS
     Route: 047
  12. CALCIUM [Concomitant]
     Indication: SUPPLEMENTATION THERAPY
     Dosage: 1200 MILLIGRAM
     Route: 048
  13. VITAMIN D3 [Concomitant]
     Indication: SUPPLEMENTATION THERAPY
     Dosage: 1400 UNITS
     Route: 048
  14. MULTIVITAMINS [Concomitant]
     Indication: SUPPLEMENTATION THERAPY
     Dosage: 1 TABLET
     Route: 048
  15. OXY-IR [Concomitant]
     Indication: NEUROPATHY PERIPHERAL
     Dosage: 30 MILLIGRAM
     Route: 048
  16. K-DUR [Concomitant]
     Indication: SUPPLEMENTATION THERAPY
     Dosage: 20 MILLIEQUIVALENTS
     Route: 048
  17. KLOR-CON [Concomitant]
     Indication: SUPPLEMENTATION THERAPY
     Dosage: 20 MILLIEQUIVALENTS
     Route: 048
  18. TRAVATAN [Concomitant]
     Indication: GLAUCOMA
     Dosage: 1 DROPS
     Route: 047
  19. ZOMETA [Concomitant]
     Indication: PLASMA CELL MYELOMA
     Route: 041
  20. ELAVIL [Concomitant]
     Indication: SLEEP DISORDER
     Dosage: 25 MILLIGRAM
     Route: 048
  21. ELAVIL [Concomitant]
     Dosage: 50 MILLIGRAM
     Route: 048
  22. CYMBALTA [Concomitant]
     Indication: NEUROPATHY PERIPHERAL
     Dosage: 30MG-60MG
     Route: 048
  23. ASPIRIN [Concomitant]
     Indication: PROPHYLAXIS
     Dosage: 325 MILLIGRAM
     Route: 048
  24. MICRO-K [Concomitant]
     Indication: SUPPLEMENTATION THERAPY
     Dosage: 20 MILLIEQUIVALENTS
     Route: 048

REACTIONS (2)
  - Actinic keratosis [Recovered/Resolved]
  - Squamous cell carcinoma [None]
